FAERS Safety Report 12147921 (Version 2)
Quarter: 2016Q1

REPORT INFORMATION
  Report Type: Report from Study
  Country: US (occurrence: US)
  Receive Date: 20160304
  Receipt Date: 20160314
  Transmission Date: 20160526
  Serious: Yes (Hospitalization, Other)
  Sender: FDA-Public Use
  Company Number: US-UCBSA-2016007659

PATIENT
  Age: 64 Year
  Sex: Female
  Weight: 60.78 kg

DRUGS (8)
  1. LEVETIRACETAM. [Suspect]
     Active Substance: LEVETIRACETAM
     Indication: SEIZURE
     Dosage: 1000MG IN AM-1000MG IN MID DAY-2000MG AT BED TIME, 3X/DAY (TID)
     Route: 048
  2. ATORVASTATIN [Concomitant]
     Active Substance: ATORVASTATIN
     Indication: BLOOD CHOLESTEROL
     Dosage: 40 MG, DAILY
     Route: 048
  3. PAXIL [Concomitant]
     Active Substance: PAROXETINE HYDROCHLORIDE
     Indication: PRODUCT USED FOR UNKNOWN INDICATION
     Dosage: 40 MG, DAILY
     Route: 048
  4. COENZYME Q10 [Concomitant]
     Active Substance: UBIDECARENONE
     Indication: SUPPLEMENTATION THERAPY
     Dosage: UNK, DAILY
     Route: 048
  5. KEPPRA [Suspect]
     Active Substance: LEVETIRACETAM
     Indication: SEIZURE
     Dosage: UNK
  6. LACOSAMIDE [Suspect]
     Active Substance: LACOSAMIDE
     Indication: SEIZURE
     Dosage: (100MG TABLETS) TAKING 2 TABLETS IN AM 1 +1/2 TABLETS MID-DAY AND 2 TABLETS AT BEDTIME
     Route: 048
     Dates: start: 2007
  7. VITAMIN D [Concomitant]
     Active Substance: CHOLECALCIFEROL
     Indication: SUPPLEMENTATION THERAPY
     Dosage: UNK, DAILY
     Route: 048
  8. PANTOPRAZOLE [Concomitant]
     Active Substance: PANTOPRAZOLE SODIUM
     Indication: GASTROOESOPHAGEAL REFLUX DISEASE
     Dosage: 40 MG, DAILY
     Route: 048

REACTIONS (7)
  - Spinal fracture [Not Recovered/Not Resolved]
  - Overdose [Unknown]
  - Inappropriate schedule of drug administration [Unknown]
  - Off label use [Unknown]
  - Fall [Recovered/Resolved]
  - Back pain [Not Recovered/Not Resolved]
  - Dizziness [Recovered/Resolved]

NARRATIVE: CASE EVENT DATE: 2007
